FAERS Safety Report 9379357 (Version 1)
Quarter: 2013Q3

REPORT INFORMATION
  Report Type: Spontaneous
  Country: FR (occurrence: FR)
  Receive Date: 20130702
  Receipt Date: 20130702
  Transmission Date: 20140515
  Serious: Yes (Hospitalization, Other)
  Sender: FDA-Public Use
  Company Number: FR-TEVA-415765ISR

PATIENT
  Age: 10 Year
  Sex: Female
  Weight: 41.5 kg

DRUGS (18)
  1. VINCRISTINE [Suspect]
     Indication: EWING^S SARCOMA METASTATIC
     Dosage: 1.5 MG/M2 DAILY; VIDE PROTOCOL
     Route: 042
     Dates: start: 20130228, end: 20130228
  2. DOXORUBICIN TEVA [Suspect]
     Indication: EWING^S SARCOMA METASTATIC
     Dosage: 20 MG/M2 DAILY; VIDE PROTOCOL
     Route: 042
     Dates: start: 20130228, end: 20130302
  3. HOLOXAN [Suspect]
     Indication: EWING^S SARCOMA METASTATIC
     Dosage: 3000 MG/M2 DAILY; VIDE PROTOCOL
     Route: 042
     Dates: start: 20130228, end: 20130302
  4. ETOPOPHOS [Suspect]
     Indication: EWING^S SARCOMA METASTATIC
     Dosage: 150 MG/M2 DAILY; VIDE PROTOCOL
     Route: 042
     Dates: start: 20130228, end: 20130302
  5. LYRICA 75 MG CAPSULE [Concomitant]
     Dosage: 150 MILLIGRAM DAILY;
     Route: 048
     Dates: start: 201301
  6. PERFALGAN [Concomitant]
     Dosage: 2000 MILLIGRAM DAILY;
     Route: 042
     Dates: start: 20130308, end: 20130320
  7. BACTRIM [Concomitant]
     Dates: start: 201301
  8. MORPHINE [Concomitant]
  9. ZOPHREN [Concomitant]
  10. MOTILIUM [Concomitant]
  11. X PREP [Concomitant]
  12. NEUPOGEN [Concomitant]
  13. INEXIUM [Concomitant]
  14. PLITICAN [Concomitant]
  15. POLARAMINE [Concomitant]
  16. VANCOMYCINE [Concomitant]
  17. TIENAM [Concomitant]
  18. TAZOCILLINE [Concomitant]

REACTIONS (2)
  - Palmar-plantar erythrodysaesthesia syndrome [Recovered/Resolved]
  - Febrile bone marrow aplasia [Recovered/Resolved]
